FAERS Safety Report 5604550-1 (Version None)
Quarter: 2008Q1

REPORT INFORMATION
  Report Type: 
  Country: None (occurrence: None)
  Receive Date: 20080123
  Receipt Date: 20080114
  Transmission Date: 20080703
  Serious: Yes (Death)
  Sender: FDA-Public Use
  Company Number: B0503087A

PATIENT
  Age: 50 Year
  Sex: Female

DRUGS (5)
  1. BUPROPION HYDROCHLORIDE [Suspect]
     Dosage: ORAL
     Route: 048
  2. COCAINE (FORMULATION UNKNOWN) (COCAINE) [Suspect]
     Dosage: ORAL
     Route: 048
  3. OPIATE (FORMULATION UNKNOWN) (OPIATE) [Suspect]
     Dosage: ORAL
     Route: 048
  4. OPIATE ANTAGONIST MEDICA. (FORMULATION UNKNOWN) (OPIATE ANTAGONIST MED [Suspect]
     Dosage: ORAL
     Route: 048
  5. TRICYCLIC ANTIDEPRESSANT (FORMULATION UNKNOWN) (TRICYCLIC ANTIDEPRESSA [Suspect]
     Dosage: ORAL
     Route: 048

REACTIONS (1)
  - COMPLETED SUICIDE [None]
